FAERS Safety Report 18912393 (Version 2)
Quarter: 2021Q1

REPORT INFORMATION
  Report Type: Spontaneous
  Country: FR (occurrence: FR)
  Receive Date: 20210218
  Receipt Date: 20210301
  Transmission Date: 20210420
  Serious: Yes (Other)
  Sender: FDA-Public Use
  Company Number: FR-GUERBET-FR-20210058

PATIENT
  Age: 42 Year
  Sex: Male

DRUGS (3)
  1. OPTIJECT 350 [Suspect]
     Active Substance: IOVERSOL
     Indication: CHEST SCAN
     Route: 040
     Dates: start: 20210205, end: 20210205
  2. OPTIJECT 350 [Suspect]
     Active Substance: IOVERSOL
     Indication: ABDOMEN SCAN
  3. OPTIJECT 350 [Suspect]
     Active Substance: IOVERSOL
     Indication: COMPUTERISED TOMOGRAM

REACTIONS (7)
  - Eye oedema [Recovered/Resolved]
  - Face oedema [Recovered/Resolved]
  - Tachycardia [Recovered/Resolved]
  - Cough [Recovered/Resolved]
  - Nasal congestion [Recovered/Resolved]
  - Rash [Recovered/Resolved]
  - Anaphylactoid reaction [Recovered/Resolved]

NARRATIVE: CASE EVENT DATE: 20210205
